FAERS Safety Report 7633229-X (Version None)
Quarter: 2011Q3

REPORT INFORMATION
  Report Type: 
  Country: None (occurrence: None)
  Receive Date: 20110725
  Receipt Date: 20110713
  Transmission Date: 20111222
  Serious: Yes (Death, Other)
  Sender: FDA-Public Use
  Company Number: JP-ASTRAZENECA-2011SE43338

PATIENT
  Age: 73 Year
  Sex: Female

DRUGS (7)
  1. CANDESARTAN CILEXETIL [Suspect]
     Route: 048
  2. UNKNOWN HEART FAILURE MEDICATION [Concomitant]
     Route: 065
  3. DIAMICRON [Suspect]
     Route: 065
  4. UNKNOWN DIURETIC THERAPY [Concomitant]
     Route: 065
  5. ISORDIL [Suspect]
     Route: 065
  6. BETALOC [Suspect]
     Route: 065
  7. METFORMIN HCL [Suspect]
     Route: 065

REACTIONS (4)
  - RENAL FAILURE ACUTE [None]
  - WRONG DRUG ADMINISTERED [None]
  - BLOOD GLUCOSE DECREASED [None]
  - HYPOTENSION [None]
